FAERS Safety Report 18266897 (Version 2)
Quarter: 2020Q4

REPORT INFORMATION
  Report Type: Spontaneous
  Country: GB (occurrence: GB)
  Receive Date: 20200915
  Receipt Date: 20201113
  Transmission Date: 20210113
  Serious: Yes (Death, Other)
  Sender: FDA-Public Use
  Company Number: GB-ACCORD-200701

PATIENT
  Age: 45 Year
  Sex: Male
  Weight: 88.9 kg

DRUGS (14)
  1. DIAZEPAM. [Concomitant]
     Active Substance: DIAZEPAM
     Dosage: 1 IF NEEDED MAXIMUM OF 2MG PER DAY
  2. CLOZAPINE. [Suspect]
     Active Substance: CLOZAPINE
     Indication: SCHIZOPHRENIA
     Dosage: 150MG IN THE MORNING AND 400MG AT NIGHT
     Route: 048
     Dates: start: 2008
  3. PRAVASTATIN. [Concomitant]
     Active Substance: PRAVASTATIN
     Dosage: NIGHT
  4. PROCHLORPERAZINE. [Concomitant]
     Active Substance: PROCHLORPERAZINE
  5. DIPROBASE [Concomitant]
     Active Substance: CHLOROCRESOL
     Indication: DRY SKIN
     Dosage: APPLY FREQUENTLY
  6. RAMIPRIL. [Concomitant]
     Active Substance: RAMIPRIL
  7. KETOCONAZOLE. [Concomitant]
     Active Substance: KETOCONAZOLE
  8. BISOPROLOL [Concomitant]
     Active Substance: BISOPROLOL
  9. VALPROIC ACID. [Concomitant]
     Active Substance: VALPROIC ACID
  10. LAMOTRIGINE. [Concomitant]
     Active Substance: LAMOTRIGINE
  11. DESMOPRESSIN [Concomitant]
     Active Substance: DESMOPRESSIN
     Dosage: NIGHT
     Route: 045
  12. LACTULOSE. [Concomitant]
     Active Substance: LACTULOSE
     Dosage: NIGHT.
  13. CLOZAPINE. [Suspect]
     Active Substance: CLOZAPINE
     Indication: SCHIZOPHRENIA
     Dosage: MORNING 150MG, NIGHT 400MG
     Route: 048
     Dates: start: 2008
  14. KEMADRIN [Concomitant]
     Active Substance: PROCYCLIDINE HYDROCHLORIDE

REACTIONS (3)
  - Sudden cardiac death [Fatal]
  - Arrhythmia [Not Recovered/Not Resolved]
  - Antipsychotic drug level above therapeutic [Not Recovered/Not Resolved]

NARRATIVE: CASE EVENT DATE: 20190306
